FAERS Safety Report 18370174 (Version 3)
Quarter: 2022Q1

REPORT INFORMATION
  Report Type: Spontaneous
  Country: US (occurrence: US)
  Receive Date: 20201012
  Receipt Date: 20220226
  Transmission Date: 20220423
  Serious: No
  Sender: FDA-Public Use
  Company Number: US-SANOFI-00305306

PATIENT
  Sex: Male

DRUGS (1)
  1. DUPIXENT [Suspect]
     Active Substance: DUPILUMAB
     Indication: Dermatitis atopic
     Dosage: UNK
     Dates: start: 20191207, end: 20200819

REACTIONS (3)
  - Anogenital warts [Unknown]
  - Papilloma viral infection [Unknown]
  - Giant papillary conjunctivitis [Unknown]

NARRATIVE: CASE EVENT DATE: 20190101
